FAERS Safety Report 12371553 (Version 2)
Quarter: 2016Q2

REPORT INFORMATION
  Report Type: Spontaneous
  Country: US (occurrence: US)
  Receive Date: 20160516
  Receipt Date: 20160531
  Transmission Date: 20160815
  Serious: No
  Sender: FDA-Public Use
  Company Number: US-MDT-ADR-2016-00872

PATIENT
  Age: 55 Year
  Sex: Male

DRUGS (2)
  1. BACLOFEN. [Suspect]
     Active Substance: BACLOFEN
     Route: 037
  2. MORPHINE DRUG, UNKNOWN [Suspect]
     Active Substance: MORPHINE

REACTIONS (2)
  - Device malfunction [None]
  - Pain [Unknown]

NARRATIVE: CASE EVENT DATE: 20160504
